FAERS Safety Report 5672438-6 (Version None)
Quarter: 2008Q1

REPORT INFORMATION
  Report Type: 
  Country: None (occurrence: None)
  Receive Date: 20080317
  Receipt Date: 20080313
  Transmission Date: 20080703
  Serious: Yes (Hospitalization)
  Sender: FDA-Public Use
  Company Number: BET-1539-AE

PATIENT
  Sex: Female
  Weight: 89.3586 kg

DRUGS (6)
  1. BETIMOL [Suspect]
     Dosage: BID; EACH EYE DAILY
  2. BETIMOL [Suspect]
     Indication: GLAUCOMA
     Dosage: TOPICAL;OPHTHALMIC
     Route: 061
  3. PREDNISOLONE [Concomitant]
  4. NAPROXEN [Concomitant]
  5. FUROSEMIDE [Concomitant]
  6. REMICADE [Concomitant]

REACTIONS (1)
  - URINARY TRACT INFECTION [None]
